FAERS Safety Report 19867399 (Version 1)
Quarter: 2021Q3

REPORT INFORMATION
  Report Type: Spontaneous
  Country: US (occurrence: US)
  Receive Date: 20210922
  Receipt Date: 20210922
  Transmission Date: 20211014
  Serious: Yes (Death, Hospitalization, Other)
  Sender: FDA-Public Use
  Company Number: US-GRANULES-US-2021GRALIT00487

PATIENT
  Age: 31 Year
  Sex: Male
  Weight: 83 kg

DRUGS (7)
  1. FERROUS SULFATE. [Suspect]
     Active Substance: FERROUS SULFATE
     Indication: PRODUCT USED FOR UNKNOWN INDICATION
     Dosage: 325 MG 100 TABLETS
     Route: 048
  2. N?ACETYLCYSTEINE [Interacting]
     Active Substance: ACETYLCYSTEINE
     Indication: SUPPORTIVE CARE
     Route: 042
  3. DEFEROXAMINE [Interacting]
     Active Substance: DEFEROXAMINE MESYLATE
     Indication: SUPPORTIVE CARE
     Route: 042
  4. PHENYLEPHRINE [Interacting]
     Active Substance: PHENYLEPHRINE HYDROCHLORIDE
     Indication: HYPOTENSION
     Route: 065
  5. VASOPRESSIN. [Interacting]
     Active Substance: VASOPRESSIN
     Indication: HYPOTENSION
     Route: 065
  6. ACETAMINOPHEN. [Suspect]
     Active Substance: ACETAMINOPHEN
     Indication: PRODUCT USED FOR UNKNOWN INDICATION
     Dosage: 325 MG 100 TABLETS
     Route: 048
  7. NOREPINEPHRINE. [Interacting]
     Active Substance: NOREPINEPHRINE
     Indication: HYPOTENSION
     Route: 065

REACTIONS (6)
  - Acute hepatic failure [Fatal]
  - Drug interaction [Fatal]
  - Acute kidney injury [Fatal]
  - Intentional overdose [Fatal]
  - Metabolic acidosis [Fatal]
  - Toxicity to various agents [Fatal]
